FAERS Safety Report 14573537 (Version 3)
Quarter: 2019Q2

REPORT INFORMATION
  Report Type: Spontaneous
  Country: US (occurrence: US)
  Receive Date: 20180226
  Receipt Date: 20190411
  Transmission Date: 20190711
  Serious: Yes (Death, Hospitalization)
  Sender: FDA-Public Use
  Company Number: US-PFIZER INC-2018080262

PATIENT
  Age: 77 Year
  Sex: Female
  Weight: 57 kg

DRUGS (5)
  1. TYVASO [Concomitant]
     Active Substance: TREPROSTINIL
     Indication: PULMONARY HYPERTENSION
     Dosage: 9 PUFFS EVERY 4 HOURS
  2. REVATIO [Suspect]
     Active Substance: SILDENAFIL CITRATE
     Indication: PULMONARY HYPERTENSION
     Dosage: 40 MG, 3X/DAY
     Route: 048
     Dates: start: 1996
  3. REVATIO [Suspect]
     Active Substance: SILDENAFIL CITRATE
     Indication: CARDIAC FAILURE
  4. TYVASO [Concomitant]
     Active Substance: TREPROSTINIL
     Dosage: 10 DF, 4X/DAY
     Dates: start: 1996
  5. AMBRISENTAN [Concomitant]
     Active Substance: AMBRISENTAN
     Indication: PULMONARY HYPERTENSION
     Dosage: 10 MG, DAILY IN THE EVENING
     Dates: start: 1996

REACTIONS (2)
  - Product use issue [Unknown]
  - Cardiac failure congestive [Fatal]

NARRATIVE: CASE EVENT DATE: 1996
